FAERS Safety Report 16343130 (Version 5)
Quarter: 2021Q3

REPORT INFORMATION
  Report Type: Report from Study
  Country: US (occurrence: US)
  Receive Date: 20190522
  Receipt Date: 20210831
  Transmission Date: 20211014
  Serious: Yes (Other)
  Sender: FDA-Public Use
  Company Number: US-SHIRE-US201916522

PATIENT
  Age: 58 Year
  Sex: Male

DRUGS (8)
  1. TEDUGLUTIDE [Suspect]
     Active Substance: TEDUGLUTIDE
     Indication: SHORT-BOWEL SYNDROME
     Dosage: 0.265 INTERNATIONAL UNIT
     Route: 058
     Dates: start: 20161024
  2. TEDUGLUTIDE [Suspect]
     Active Substance: TEDUGLUTIDE
     Indication: SHORT-BOWEL SYNDROME
     Dosage: 0.265 INTERNATIONAL UNIT
     Route: 058
     Dates: start: 20161024
  3. TEDUGLUTIDE [Suspect]
     Active Substance: TEDUGLUTIDE
     Indication: SHORT-BOWEL SYNDROME
     Dosage: 0.265 INTERNATIONAL UNIT
     Route: 058
     Dates: start: 20161024
  4. TEDUGLUTIDE [Suspect]
     Active Substance: TEDUGLUTIDE
     Indication: MULTIPLE SCLEROSIS
     Dosage: 0.13 MILLILITER, QD
     Route: 058
     Dates: start: 20181112
  5. TEDUGLUTIDE [Suspect]
     Active Substance: TEDUGLUTIDE
     Indication: MULTIPLE SCLEROSIS
     Dosage: 0.13 MILLILITER, QD
     Route: 058
     Dates: start: 20181112
  6. TEDUGLUTIDE [Suspect]
     Active Substance: TEDUGLUTIDE
     Indication: SHORT-BOWEL SYNDROME
     Dosage: 0.265 INTERNATIONAL UNIT
     Route: 058
     Dates: start: 20161024
  7. TEDUGLUTIDE [Suspect]
     Active Substance: TEDUGLUTIDE
     Indication: MULTIPLE SCLEROSIS
     Dosage: 0.13 MILLILITER, QD
     Route: 058
     Dates: start: 20181112
  8. TEDUGLUTIDE [Suspect]
     Active Substance: TEDUGLUTIDE
     Indication: MULTIPLE SCLEROSIS
     Dosage: 0.13 MILLILITER, QD
     Route: 058
     Dates: start: 20181112

REACTIONS (9)
  - Deafness unilateral [Unknown]
  - Abdominal pain upper [Unknown]
  - Cerebrovascular accident [Unknown]
  - Dysphonia [Unknown]
  - Nausea [Unknown]
  - Blindness unilateral [Unknown]
  - Multiple sclerosis [Unknown]
  - Headache [Unknown]
  - Fatigue [Recovering/Resolving]

NARRATIVE: CASE EVENT DATE: 20190516
